FAERS Safety Report 11444295 (Version 2)
Quarter: 2015Q3

REPORT INFORMATION
  Report Type: Report from Study
  Country: US (occurrence: US)
  Receive Date: 20150901
  Receipt Date: 20150930
  Transmission Date: 20151125
  Serious: No
  Sender: FDA-Public Use
  Company Number: US-AMGEN-USASP2015087726

PATIENT
  Age: 82 Year
  Sex: Female

DRUGS (1)
  1. ENBREL [Suspect]
     Active Substance: ETANERCEPT
     Indication: PSORIATIC ARTHROPATHY
     Dosage: 50 MG, UNK
     Route: 065

REACTIONS (14)
  - Urinary tract infection [Unknown]
  - Neck pain [Unknown]
  - Gait disturbance [Unknown]
  - Arthralgia [Unknown]
  - Joint range of motion decreased [Unknown]
  - Back pain [Unknown]
  - Fatigue [Unknown]
  - Psoriasis [Unknown]
  - Constipation [Unknown]
  - Skin mass [Unknown]
  - Chest pain [Unknown]
  - Joint swelling [Unknown]
  - Cough [Unknown]
  - Mobility decreased [Unknown]

NARRATIVE: CASE EVENT DATE: 20150622
